FAERS Safety Report 5566734-0 (Version None)
Quarter: 2007Q4

REPORT INFORMATION
  Report Type: 
  Country: None (occurrence: None)
  Receive Date: 20071218
  Receipt Date: 20071218
  Transmission Date: 20080405
  Serious: Yes (Other)
  Sender: FDA-Public Use
  Company Number: None

PATIENT
  Age: 43 Year
  Sex: Male
  Weight: 104.3273 kg

DRUGS (3)
  1. CHANTIX [Suspect]
     Indication: SMOKING CESSATION THERAPY
     Dosage: 1MG  BID PO
     Route: 048
     Dates: start: 20070928, end: 20071215
  2. PREVACID [Concomitant]
  3. FEXOFENADINE [Concomitant]

REACTIONS (1)
  - MYALGIA [None]
